FAERS Safety Report 9733740 (Version 1)
Quarter: 2013Q4

REPORT INFORMATION
  Report Type: Spontaneous
  Country: US (occurrence: US)
  Receive Date: 20131205
  Receipt Date: 20131205
  Transmission Date: 20140711
  Serious: Yes (Hospitalization)
  Sender: FDA-Public Use
  Company Number: US-ASTELLAS-2013US012554

PATIENT
  Sex: Male

DRUGS (2)
  1. PROGRAF [Suspect]
     Indication: STEM CELL TRANSPLANT
     Dosage: UNK MG, BID
     Route: 042
  2. TACROLIMUS [Suspect]
     Indication: STEM CELL TRANSPLANT
     Dosage: 1 MG, BID
     Route: 048

REACTIONS (2)
  - Off label use [Unknown]
  - Graft versus host disease [Unknown]
